FAERS Safety Report 19364223 (Version 1)
Quarter: 2021Q2

REPORT INFORMATION
  Report Type: Spontaneous
  Country: CN (occurrence: CN)
  Receive Date: 20210602
  Receipt Date: 20210602
  Transmission Date: 20210717
  Serious: Yes (Other)
  Sender: FDA-Public Use
  Company Number: CN-PFIZER INC-2021577196

PATIENT
  Age: 4 Year
  Sex: Male
  Weight: 25 kg

DRUGS (4)
  1. MECOBALAMIN [Concomitant]
     Active Substance: METHYLCOBALAMIN
     Indication: THERAPEUTIC PROCEDURE
     Dosage: 0.500 MG, 1X/DAY
     Route: 048
     Dates: start: 20210415, end: 20210426
  2. VITAMIN B1 [Concomitant]
     Active Substance: THIAMINE HYDROCHLORIDE
     Indication: THERAPEUTIC PROCEDURE
     Dosage: 10.000 MG, 3X/DAY
     Route: 048
     Dates: start: 20210415, end: 20210426
  3. METHYLPREDNISOLONE SODIUM SUCCINATE. [Suspect]
     Active Substance: METHYLPREDNISOLONE SODIUM SUCCINATE
     Indication: THERAPEUTIC PROCEDURE
     Dosage: 500.000 MG, 1X/DAY
     Route: 041
     Dates: start: 20210422, end: 20210426
  4. METHYLPREDNISOLONE SODIUM SUCCINATE. [Suspect]
     Active Substance: METHYLPREDNISOLONE SODIUM SUCCINATE
     Indication: IMMUNOMODULATORY THERAPY

REACTIONS (2)
  - Rash erythematous [Recovering/Resolving]
  - Cheilitis [Recovering/Resolving]

NARRATIVE: CASE EVENT DATE: 20210424
